FAERS Safety Report 13677804 (Version 1)
Quarter: 2017Q2

REPORT INFORMATION
  Report Type: Spontaneous
  Country: US (occurrence: US)
  Receive Date: 20170622
  Receipt Date: 20170622
  Transmission Date: 20170830
  Serious: No
  Sender: FDA-Public Use
  Company Number: US-GLAXOSMITHKLINE-US2017095668

PATIENT
  Sex: Female

DRUGS (2)
  1. BUPROPION TABLET [Suspect]
     Active Substance: BUPROPION
     Indication: OBSESSIVE-COMPULSIVE DISORDER
     Dosage: 300 MG, QD
     Route: 048
  2. BUPROPION TABLET [Suspect]
     Active Substance: BUPROPION
     Indication: DEPRESSION
     Dosage: 150 MG, QD
     Route: 048
     Dates: start: 2016

REACTIONS (5)
  - Product use in unapproved indication [Unknown]
  - Product substitution issue [Unknown]
  - Tinnitus [Recovered/Resolved]
  - Drug ineffective [Unknown]
  - Vision blurred [Recovered/Resolved]

NARRATIVE: CASE EVENT DATE: 2016
